FAERS Safety Report 18936674 (Version 1)
Quarter: 2021Q1

REPORT INFORMATION
  Report Type: Spontaneous
  Country: US (occurrence: US)
  Receive Date: 20210225
  Receipt Date: 20210225
  Transmission Date: 20210420
  Serious: No
  Sender: FDA-Public Use
  Company Number: US-LUNDBECK-DKLU3028279

PATIENT
  Age: 83 Year
  Sex: Female

DRUGS (1)
  1. NORTHERA [Suspect]
     Active Substance: DROXIDOPA
     Indication: ORTHOSTATIC HYPOTENSION
     Route: 048
     Dates: start: 20210204

REACTIONS (3)
  - Wheezing [Unknown]
  - Respiratory rate increased [Unknown]
  - Tachycardia [Unknown]

NARRATIVE: CASE EVENT DATE: 202102
